FAERS Safety Report 9812207 (Version 1)
Quarter: 2014Q1

REPORT INFORMATION
  Report Type: Spontaneous
  Country: FR (occurrence: FR)
  Receive Date: 20140112
  Receipt Date: 20140112
  Transmission Date: 20141002
  Serious: Yes (Hospitalization)
  Sender: FDA-Public Use
  Company Number: FR-MYLANLABS-2013S1029124

PATIENT
  Age: 7 Year
  Sex: Male
  Weight: 25.5 kg

DRUGS (1)
  1. METHOTREXATE [Suspect]
     Indication: OSTEOSARCOMA
     Route: 042
     Dates: start: 20131026

REACTIONS (3)
  - Blood bilirubin increased [Recovered/Resolved]
  - Hepatocellular injury [Not Recovered/Not Resolved]
  - Drug clearance decreased [Recovered/Resolved]
